FAERS Safety Report 6836891-4 (Version None)
Quarter: 2010Q3

REPORT INFORMATION
  Report Type: 
  Country: None (occurrence: None)
  Receive Date: 20100713
  Receipt Date: 20070501
  Transmission Date: 20110219
  Serious: No
  Sender: FDA-Public Use
  Company Number: US-PFIZER INC-2007036316

PATIENT
  Sex: Female
  Weight: 58.06 kg

DRUGS (4)
  1. CHANTIX [Suspect]
     Indication: SMOKING CESSATION THERAPY
     Dates: start: 20070201
  2. NORVASC [Concomitant]
  3. ZETIA [Concomitant]
  4. ESTROGENS [Concomitant]

REACTIONS (6)
  - ABDOMINAL DISCOMFORT [None]
  - CONSTIPATION [None]
  - FATIGUE [None]
  - HOT FLUSH [None]
  - IMPAIRED DRIVING ABILITY [None]
  - INSOMNIA [None]
